FAERS Safety Report 8561890-4 (Version None)
Quarter: 2012Q3

REPORT INFORMATION
  Report Type: 
  Country: None (occurrence: None)
  Receive Date: 20120802
  Receipt Date: 20120724
  Transmission Date: 20120928
  Serious: No
  Sender: FDA-Public Use
  Company Number: US-AMGEN-USASP2011036380

PATIENT
  Age: 38 Year
  Sex: Female
  Weight: 29.478 kg

DRUGS (2)
  1. INDOCIN                            /00003801/ [Concomitant]
     Indication: ANKYLOSING SPONDYLITIS
     Dosage: UNK UNK, BID
     Route: 048
     Dates: start: 20030101
  2. ENBREL [Suspect]
     Indication: ANKYLOSING SPONDYLITIS
     Dosage: 50 MG, QWK
     Dates: start: 20050101

REACTIONS (1)
  - ANKYLOSING SPONDYLITIS [None]
